FAERS Safety Report 4627939-6 (Version None)
Quarter: 2005Q3

REPORT INFORMATION
  Report Type: 
  Country: None (occurrence: None)
  Receive Date: 20050401
  Receipt Date: 20050318
  Transmission Date: 20060218
  Serious: Yes (Hospitalization)
  Sender: FDA-Public Use
  Company Number: 029-05

PATIENT
  Age: 74 Year
  Sex: Male

DRUGS (8)
  1. AMIODARONE HCL [Suspect]
     Indication: ATRIAL FIBRILLATION
     Dosage: 200 MG QD PO
     Route: 048
  2. ZOCOR [Concomitant]
  3. PRILOSEC [Concomitant]
  4. XANAX [Concomitant]
  5. FLOVENT [Concomitant]
  6. SEREVENT [Concomitant]
  7. FLOMAX [Concomitant]
  8. LEVOXYL [Concomitant]

REACTIONS (6)
  - BLOOD THYROID STIMULATING HORMONE ABNORMAL [None]
  - CONTUSION [None]
  - DYSKINESIA [None]
  - FALL [None]
  - SKIN LACERATION [None]
  - SYNCOPE VASOVAGAL [None]
